FAERS Safety Report 9929091 (Version 2)
Quarter: 2014Q2

REPORT INFORMATION
  Report Type: Spontaneous
  Country: US (occurrence: US)
  Receive Date: 20140227
  Receipt Date: 20140418
  Transmission Date: 20141212
  Serious: Yes (Death)
  Sender: FDA-Public Use
  Company Number: US-BRISTOL-MYERS SQUIBB COMPANY-20293171

PATIENT
  Age: 53 Year
  Sex: Female

DRUGS (5)
  1. ABILIFY [Suspect]
     Indication: BIPOLAR DISORDER
     Route: 048
     Dates: start: 20131015
  2. LAMICTAL [Concomitant]
  3. ZOLOFT [Concomitant]
     Dosage: 1.5 TABS
  4. LEVOXYL [Concomitant]
  5. HCTZ [Concomitant]
     Route: 048
     Dates: start: 20121001, end: 20121015

REACTIONS (1)
  - Death [Fatal]
